FAERS Safety Report 7979358-2 (Version None)
Quarter: 2011Q4

REPORT INFORMATION
  Report Type: 
  Country: None (occurrence: None)
  Receive Date: 20111214
  Receipt Date: 20111212
  Transmission Date: 20120403
  Serious: No
  Sender: FDA-Public Use
  Company Number: US-BAYER-2011-119617

PATIENT
  Sex: Female

DRUGS (1)
  1. ANGELIQ [Suspect]

REACTIONS (1)
  - SKIN DISORDER [None]
